FAERS Safety Report 4852394-0 (Version None)
Quarter: 2005Q4

REPORT INFORMATION
  Report Type: 
  Country: None (occurrence: None)
  Receive Date: 20051123
  Receipt Date: 20050310
  Transmission Date: 20060501
  Serious: Yes (Hospitalization)
  Sender: FDA-Public Use
  Company Number: US-JNJFOC-20041000343

PATIENT
  Age: 51 Year
  Sex: Male
  Weight: 90.7194 kg

DRUGS (9)
  1. LEVAQUIN [Suspect]
     Indication: PANCREATITIS
     Dosage: 500 MG, INTRAVENOUS
     Route: 042
     Dates: start: 20040911, end: 20040914
  2. LEVAQUIN [Suspect]
     Dosage: 500 MG, 1 IN 1 DAY, ORAL
     Route: 048
     Dates: start: 20040914
  3. OMPRAZOLE (OMEPRAZOLE) [Concomitant]
  4. ROXICET [Concomitant]
  5. MYLANTA (MYLANTA) [Concomitant]
  6. IMIPENUM (IMIPENEM) [Concomitant]
  7. PERCOCET [Concomitant]
  8. MALLOX (MAALOX) [Concomitant]
  9. DILAUDID [Concomitant]

REACTIONS (2)
  - ARTHRALGIA [None]
  - EPIDERMOLYSIS [None]
